FAERS Safety Report 6505374-3 (Version None)
Quarter: 2009Q4

REPORT INFORMATION
  Report Type: 
  Country: None (occurrence: None)
  Receive Date: 20091218
  Receipt Date: 20091211
  Transmission Date: 20100525
  Serious: Yes (Other)
  Sender: FDA-Public Use
  Company Number: JP-ROCHE-669814

PATIENT
  Sex: Male
  Weight: 35 kg

DRUGS (4)
  1. TAMIFLU [Suspect]
     Indication: INFLUENZA
     Route: 048
     Dates: start: 20091109, end: 20091109
  2. TAMIFLU [Suspect]
     Route: 048
     Dates: start: 20091110, end: 20091111
  3. MUCODYNE [Concomitant]
     Dosage: DOSE FORM: ORAL FORMULATION (NOT OTHERWISE SPECIFIED)
     Route: 048
     Dates: start: 20091109, end: 20091114
  4. TRANSAMIN [Concomitant]
     Dosage: DOSE FORM: ORAL FORMULATION (NOT OTHERWISE SPECIFIED)
     Route: 048
     Dates: start: 20091109, end: 20091114

REACTIONS (1)
  - ABNORMAL BEHAVIOUR [None]
